FAERS Safety Report 10265424 (Version 2)
Quarter: 2014Q3

REPORT INFORMATION
  Report Type: Spontaneous
  Country: US (occurrence: US)
  Receive Date: 20140627
  Receipt Date: 20140818
  Transmission Date: 20150326
  Serious: No
  Sender: FDA-Public Use
  Company Number: US-009507513-1406USA007040

PATIENT
  Sex: Female

DRUGS (1)
  1. IMPLANON [Suspect]
     Active Substance: ETONOGESTREL
     Indication: CONTRACEPTION
     Dosage: 1 ROD INSERTED, IN LEFT ARM
     Route: 059
     Dates: start: 201004, end: 20140619

REACTIONS (4)
  - Device dislocation [Recovered/Resolved]
  - Incorrect drug administration duration [Unknown]
  - Weight increased [Not Recovered/Not Resolved]
  - Medical device complication [Recovered/Resolved]

NARRATIVE: CASE EVENT DATE: 2010
